FAERS Safety Report 18423959 (Version 1)
Quarter: 2020Q4

REPORT INFORMATION
  Report Type: Report from Study
  Country: AU (occurrence: AU)
  Receive Date: 20201025
  Receipt Date: 20201025
  Transmission Date: 20210114
  Serious: Yes (Other)
  Sender: FDA-Public Use
  Company Number: AU-SA-2020SA284800

PATIENT

DRUGS (2)
  1. CLARITHROMYCIN. [Suspect]
     Active Substance: CLARITHROMYCIN
     Indication: MYCOBACTERIUM ULCERANS INFECTION
     Dosage: 7.3 MG/KG, QD
  2. RIFAMPICIN [Suspect]
     Active Substance: RIFAMPIN
     Indication: MYCOBACTERIUM ULCERANS INFECTION
     Dosage: 4.4 MG/KG, QD

REACTIONS (5)
  - Incorrect dose administered [Unknown]
  - Paradoxical drug reaction [Unknown]
  - Immune reconstitution inflammatory syndrome [Unknown]
  - Drug interaction [Unknown]
  - Treatment failure [Unknown]
